FAERS Safety Report 6751928-9 (Version None)
Quarter: 2010Q2

REPORT INFORMATION
  Report Type: 
  Country: None (occurrence: None)
  Receive Date: 20100602
  Receipt Date: 20100521
  Transmission Date: 20101027
  Serious: Yes (Other)
  Sender: FDA-Public Use
  Company Number: US-PFIZER INC-2010045238

PATIENT
  Sex: Male
  Weight: 73.5 kg

DRUGS (7)
  1. ALPRAZOLAM [Suspect]
     Indication: ANXIETY
     Dosage: 1/2 OF 0.25 MG DOSE DAILY
     Dates: start: 20100325, end: 20100401
  2. ALPRAZOLAM [Suspect]
     Indication: INSOMNIA
     Dosage: UNK MG, UNK
     Dates: start: 20100101, end: 20100101
  3. ALPRAZOLAM [Suspect]
     Indication: DEPRESSION
  4. SOLU-MEDROL [Suspect]
     Dosage: UNK
  5. DOCUSATE SODIUM [Suspect]
     Dosage: UNK
  6. LEVOTHYROXINE SODIUM [Concomitant]
     Indication: THYROID DISORDER
     Dosage: 50 UG, 1X/DAY
  7. ACETYLSALICYLIC ACID [Concomitant]
     Dosage: UNK

REACTIONS (14)
  - BALANCE DISORDER [None]
  - CARDIAC DISORDER [None]
  - DIARRHOEA [None]
  - DIZZINESS [None]
  - DRUG DEPENDENCE [None]
  - FLATULENCE [None]
  - GASTROINTESTINAL DISORDER [None]
  - GASTROINTESTINAL PAIN [None]
  - HYPERSENSITIVITY [None]
  - IRRITABILITY [None]
  - MUSCLE SPASMS [None]
  - NAUSEA [None]
  - THYROID DISORDER [None]
  - WITHDRAWAL SYNDROME [None]
